FAERS Safety Report 11795681 (Version 1)
Quarter: 2015Q4

REPORT INFORMATION
  Report Type: Spontaneous
  Country: FR (occurrence: FR)
  Receive Date: 20151202
  Receipt Date: 20151202
  Transmission Date: 20160305
  Serious: Yes (Hospitalization, Other)
  Sender: FDA-Public Use
  Company Number: FR-BRISTOL-MYERS SQUIBB COMPANY-BMS-2015-081022

PATIENT
  Age: 75 Year
  Sex: Female
  Weight: 48 kg

DRUGS (9)
  1. GRANOCYTE [Interacting]
     Active Substance: LENOGRASTIM
     Indication: NEUTROPENIA
     Dosage: 1 DF, QD
     Route: 058
     Dates: start: 20150906, end: 20150912
  2. COUMADINE [Interacting]
     Active Substance: WARFARIN SODIUM
     Indication: HEART VALVE REPLACEMENT
     Dosage: 3 MG, QD
     Route: 048
  3. ENDOXAN                            /00021101/ [Interacting]
     Active Substance: CYCLOPHOSPHAMIDE
     Indication: LYMPHOMA
     Dosage: 580 MG, QD
     Route: 065
     Dates: start: 20150901
  4. LENOGRASTIM [Suspect]
     Active Substance: LENOGRASTIM
     Indication: NEUTROPENIA
     Dosage: UNK, QD
     Route: 058
     Dates: start: 20150906, end: 20150912
  5. VINCRISTINE HOSPIRA [Interacting]
     Active Substance: VINCRISTINE
     Indication: LYMPHOMA
     Dosage: 2 MG, QD
     Route: 065
     Dates: start: 20150901
  6. ALDACTONE [Concomitant]
     Active Substance: SPIRONOLACTONE
     Indication: PRODUCT USED FOR UNKNOWN INDICATION
     Dosage: 1 DF, UNK
     Route: 065
  7. BURINEX [Concomitant]
     Active Substance: BUMETANIDE
     Indication: PRODUCT USED FOR UNKNOWN INDICATION
     Dosage: 1 MG, QD
     Route: 065
  8. ZOLPIDEM [Concomitant]
     Active Substance: ZOLPIDEM\ZOLPIDEM TARTRATE
     Indication: PRODUCT USED FOR UNKNOWN INDICATION
     Dosage: 10 MG, QD
     Route: 065
  9. MABTHERA [Interacting]
     Active Substance: RITUXIMAB
     Indication: LYMPHOMA
     Dosage: 540 MG, QD
     Route: 042
     Dates: start: 20150901

REACTIONS (4)
  - Impaired healing [Not Recovered/Not Resolved]
  - Haematoma [Recovered/Resolved]
  - Lymphoma [Unknown]
  - Surgery [Unknown]

NARRATIVE: CASE EVENT DATE: 20150912
